FAERS Safety Report 8617674-1 (Version None)
Quarter: 2012Q3

REPORT INFORMATION
  Report Type: 
  Country: None (occurrence: None)
  Receive Date: 20120824
  Receipt Date: 20120106
  Transmission Date: 20120928
  Serious: No
  Sender: FDA-Public Use
  Company Number: US-ASTRAZENECA-2012SE01486

PATIENT
  Age: 57 Year
  Sex: Female

DRUGS (10)
  1. NEXIUM [Suspect]
     Indication: CHEST PAIN
     Route: 048
  2. SYMBICORT [Suspect]
     Indication: ESSENTIAL HYPERTENSION
     Dosage: 160/4.5 MCG 2 PUFFS TWO TIMES DAILY
     Route: 055
  3. SYMBICORT [Suspect]
     Indication: GASTROOESOPHAGEAL REFLUX DISEASE
     Dosage: 160/4.5 MCG 2 PUFFS TWO TIMES DAILY
     Route: 055
  4. SYMBICORT [Suspect]
     Indication: CHEST PAIN
     Dosage: 160/4.5 MCG 2 PUFFS TWO TIMES DAILY
     Route: 055
  5. NEXIUM [Suspect]
     Indication: GASTROOESOPHAGEAL REFLUX DISEASE
     Route: 048
  6. NEXIUM [Suspect]
     Indication: ESSENTIAL HYPERTENSION
     Route: 048
  7. SYMBICORT [Suspect]
     Indication: TYPE V HYPERLIPIDAEMIA
     Dosage: 160/4.5 MCG 2 PUFFS TWO TIMES DAILY
     Route: 055
  8. SYMBICORT [Suspect]
     Indication: TYPE 2 DIABETES MELLITUS
     Dosage: 160/4.5 MCG 2 PUFFS TWO TIMES DAILY
     Route: 055
  9. NEXIUM [Suspect]
     Indication: TYPE 2 DIABETES MELLITUS
     Route: 048
  10. NEXIUM [Suspect]
     Indication: TYPE V HYPERLIPIDAEMIA
     Route: 048

REACTIONS (1)
  - OFF LABEL USE [None]
